FAERS Safety Report 8162463-8 (Version None)
Quarter: 2012Q1

REPORT INFORMATION
  Report Type: 
  Country: None (occurrence: None)
  Receive Date: 20120221
  Receipt Date: 20120209
  Transmission Date: 20120608
  Serious: Yes (Hospitalization, Other)
  Sender: FDA-Public Use
  Company Number: 2012SP007731

PATIENT
  Sex: Female
  Weight: 53.0709 kg

DRUGS (2)
  1. PEGASYS [Suspect]
     Indication: HEPATITIS
     Dates: start: 20100606, end: 20101007
  2. RIBAVIRIN [Suspect]
     Indication: HEPATITIS C
     Dates: start: 20100806, end: 20101007

REACTIONS (8)
  - HEPATIC CIRRHOSIS [None]
  - CONFUSIONAL STATE [None]
  - INTESTINAL OBSTRUCTION [None]
  - CHOLECYSTECTOMY [None]
  - WHITE BLOOD CELL DISORDER [None]
  - WEIGHT DECREASED [None]
  - FAECAL VOMITING [None]
  - RED BLOOD CELL ABNORMALITY [None]
